FAERS Safety Report 19396522 (Version 1)
Quarter: 2021Q2

REPORT INFORMATION
  Report Type: Other
  Country: RO (occurrence: RO)
  Receive Date: 20210610
  Receipt Date: 20210610
  Transmission Date: 20210717
  Serious: Yes (Hospitalization, Other)
  Sender: FDA-Public Use
  Company Number: RO-CELLTRION INC.-2021RO007592

PATIENT

DRUGS (6)
  1. FLUDARA [Suspect]
     Active Substance: FLUDARABINE PHOSPHATE
     Indication: MANTLE CELL LYMPHOMA
     Route: 065
  2. CHLORAMBUCIL [Suspect]
     Active Substance: CHLORAMBUCIL
     Indication: MANTLE CELL LYMPHOMA
     Dosage: UNK, AN INTERVAL OF 28 DAYS ? 6 CYCLES
     Route: 065
     Dates: start: 201902, end: 201908
  3. CYCLOPHOSPHAMIDE. [Suspect]
     Active Substance: CYCLOPHOSPHAMIDE
     Indication: MANTLE CELL LYMPHOMA
     Route: 065
  4. GAZYVARO [Suspect]
     Active Substance: OBINUTUZUMAB
     Indication: MANTLE CELL LYMPHOMA
     Dosage: UNK, AN INTERVAL OF 28 DAYS ? 6 CYCLES
     Route: 065
     Dates: start: 201902, end: 201908
  5. RITUXIMAB (UNKNOWN) [Suspect]
     Active Substance: RITUXIMAB
     Indication: MANTLE CELL LYMPHOMA
     Route: 065
  6. IMATINIB. [Suspect]
     Active Substance: IMATINIB MESYLATE
     Indication: PRODUCT USED FOR UNKNOWN INDICATION
     Dosage: 400 MG, ONCE DAILY
     Route: 065

REACTIONS (4)
  - Prostatic abscess [Unknown]
  - Off label use [Unknown]
  - Respiratory tract infection [Unknown]
  - Intentional product use issue [Unknown]
